FAERS Safety Report 5233957-X (Version None)
Quarter: 2007Q1

REPORT INFORMATION
  Report Type: 
  Country: None (occurrence: None)
  Receive Date: 20070208
  Receipt Date: 20070130
  Transmission Date: 20070707
  Serious: Yes (Other)
  Sender: FDA-Public Use
  Company Number: US-PFIZER INC-2006104217

PATIENT
  Sex: Male
  Weight: 96.2 kg

DRUGS (5)
  1. CHANTIX [Suspect]
     Indication: SMOKING CESSATION THERAPY
     Dates: start: 20060801, end: 20061001
  2. CARDIZEM [Concomitant]
  3. CHOLESTEROL [Concomitant]
  4. ASPIRIN [Concomitant]
  5. PROZAC [Concomitant]

REACTIONS (6)
  - BLOOD CHOLESTEROL INCREASED [None]
  - DRUG EFFECT DECREASED [None]
  - DRUG INEFFECTIVE [None]
  - NAUSEA [None]
  - SMOKER [None]
  - WEIGHT INCREASED [None]
